FAERS Safety Report 9606721 (Version 1)
Quarter: 2013Q4

REPORT INFORMATION
  Report Type: Spontaneous
  Country: US (occurrence: US)
  Receive Date: 20131008
  Receipt Date: 20131008
  Transmission Date: 20140711
  Serious: No
  Sender: FDA-Public Use
  Company Number: US-AMGEN-USASP2013065106

PATIENT
  Age: 80 Year
  Sex: Female

DRUGS (5)
  1. PENTOXIFYLLINE [Concomitant]
     Dosage: 400 MG, UNK
     Route: 065
  2. CARVEDILOL [Concomitant]
     Route: 065
  3. KLOR-CON [Concomitant]
     Route: 065
  4. PROLIA [Suspect]
     Indication: OSTEOPOROSIS POSTMENOPAUSAL
     Dosage: UNK
     Route: 065
  5. GABAPENTIN [Concomitant]
     Dosage: 300 MG, UNK
     Route: 065

REACTIONS (2)
  - Malaise [Unknown]
  - Chest pain [Unknown]
